FAERS Safety Report 6545832-9 (Version None)
Quarter: 2010Q1

REPORT INFORMATION
  Report Type: 
  Country: None (occurrence: None)
  Receive Date: 20100121
  Receipt Date: 20100115
  Transmission Date: 20100710
  Serious: Yes (Hospitalization, Other)
  Sender: FDA-Public Use
  Company Number: US-ELI_LILLY_AND_COMPANY-US201001003280

PATIENT
  Sex: Female

DRUGS (4)
  1. HUMULIN R [Suspect]
     Indication: DIABETES MELLITUS
     Dates: end: 20100115
  2. HUMALOG [Suspect]
     Dates: end: 20100115
  3. HUMALOG MIX 75/25 [Suspect]
     Indication: DIABETES MELLITUS
     Dosage: 60 U, EACH MORNING
     Dates: start: 20100115
  4. HUMALOG MIX 75/25 [Suspect]
     Dosage: 40 U, EACH EVENING
     Dates: start: 20100115

REACTIONS (5)
  - BLINDNESS [None]
  - BLOOD GLUCOSE DECREASED [None]
  - BLOOD GLUCOSE INCREASED [None]
  - DIARRHOEA [None]
  - RENAL DISORDER [None]
